FAERS Safety Report 12294413 (Version 1)
Quarter: 2016Q2

REPORT INFORMATION
  Report Type: Spontaneous
  Country: US (occurrence: US)
  Receive Date: 20160422
  Receipt Date: 20160422
  Transmission Date: 20160815
  Serious: No
  Sender: FDA-Public Use
  Company Number: US-DRREDDYS-USA/USA/16/0070310

PATIENT
  Age: 16 Year
  Sex: Male

DRUGS (1)
  1. ZENATANE [Suspect]
     Active Substance: ISOTRETINOIN
     Indication: ACNE
     Dosage: 20 MG IN MORNING AND 40 MG IN THE EVENING
     Route: 048
     Dates: start: 20160128

REACTIONS (7)
  - Nausea [Recovering/Resolving]
  - Constipation [Unknown]
  - Lip dry [Unknown]
  - Dry eye [Unknown]
  - Dry mouth [Unknown]
  - Dizziness [Recovering/Resolving]
  - Headache [Recovering/Resolving]

NARRATIVE: CASE EVENT DATE: 20160129
